FAERS Safety Report 9934094 (Version 2)
Quarter: 2014Q1

REPORT INFORMATION
  Report Type: Report from Study
  Country: KR (occurrence: KR)
  Receive Date: 20140228
  Receipt Date: 20140318
  Transmission Date: 20141002
  Serious: Yes (Hospitalization)
  Sender: FDA-Public Use
  Company Number: KR-BAYER-2014-028546

PATIENT
  Age: 79 Year
  Sex: Female

DRUGS (7)
  1. SORAFENIB (RAF KINASE INHIBITOR) [Suspect]
     Indication: HEPATOCELLULAR CARCINOMA
     Dosage: UNK, UNK
     Dates: start: 20130521, end: 20140219
  2. BEECOM [Concomitant]
     Dosage: UNK
  3. BARACLUDE [Concomitant]
     Dosage: UNK
  4. PHAZYME [Concomitant]
     Dosage: UNK
     Dates: start: 20140121
  5. INDENOL [Concomitant]
     Dosage: UNK
  6. SPIRONOLACTON [Concomitant]
     Dosage: UNK
     Dates: start: 20130905, end: 20140223
  7. GANATON [Concomitant]
     Dosage: UNK
     Dates: start: 20140121

REACTIONS (1)
  - Ascites [Recovered/Resolved with Sequelae]
